FAERS Safety Report 7469441-2 (Version None)
Quarter: 2011Q2

REPORT INFORMATION
  Report Type: 
  Country: None (occurrence: None)
  Receive Date: 20110429
  Receipt Date: 20110419
  Transmission Date: 20111010
  Serious: Yes (Other)
  Sender: FDA-Public Use
  Company Number: 1000020370

PATIENT
  Age: 60 Year
  Sex: Female

DRUGS (1)
  1. NEBIVOLOL HCL [Suspect]
     Indication: HYPERTENSION
     Dosage: 5 MG (5 MG,1 IN 1 D), ORAL
     Route: 048
     Dates: start: 20110307, end: 20110323

REACTIONS (8)
  - DRY MOUTH [None]
  - FLATULENCE [None]
  - DRY EYE [None]
  - FATIGUE [None]
  - MYALGIA [None]
  - MUSCLE SPASMS [None]
  - VISUAL ACUITY REDUCED [None]
  - DIZZINESS [None]
